FAERS Safety Report 5355326-4 (Version None)
Quarter: 2007Q2

REPORT INFORMATION
  Report Type: 
  Country: None (occurrence: None)
  Receive Date: 20070611
  Receipt Date: 20070524
  Transmission Date: 20071010
  Serious: Yes (Hospitalization, Other)
  Sender: FDA-Public Use
  Company Number: A200700003

PATIENT
  Age: 80 Year
  Sex: Male
  Weight: 86.6 kg

DRUGS (4)
  1. SOLIRIS [Suspect]
     Indication: PAROXYSMAL NOCTURNAL HAEMOGLOBINURIA
     Dosage: 600 MG, SINGLE, INTRAVENOUS
     Route: 042
     Dates: start: 20070417, end: 20070417
  2. BACTRIM [Suspect]
     Indication: ANTIFUNGAL PROPHYLAXIS
     Dosage: ORAL
     Route: 048
     Dates: start: 20070313, end: 20070421
  3. BACTRIM [Suspect]
     Indication: PNEUMONIA
     Dosage: ORAL
     Route: 048
     Dates: start: 20070313, end: 20070421
  4. PREDNISONE TAB [Concomitant]

REACTIONS (10)
  - ADVERSE DRUG REACTION [None]
  - AMMONIA INCREASED [None]
  - CONFUSIONAL STATE [None]
  - DERMATITIS BULLOUS [None]
  - HAEMORRHAGE [None]
  - HEADACHE [None]
  - LICHENOID KERATOSIS [None]
  - NEUTROPENIA [None]
  - RENAL FAILURE ACUTE [None]
  - SKIN TOXICITY [None]
